FAERS Safety Report 8480842-6 (Version None)
Quarter: 2012Q2

REPORT INFORMATION
  Report Type: 
  Country: None (occurrence: None)
  Receive Date: 20120626
  Receipt Date: 20120626
  Transmission Date: 20120825
  Serious: Yes (Hospitalization, Other)
  Sender: FDA-Public Use
  Company Number: None

PATIENT
  Sex: Male

DRUGS (2)
  1. CARVEDILOL [Suspect]
     Indication: HYPERTENSION
     Dosage: 25 MG ONCE A DAY PO
     Route: 048
     Dates: start: 20120430, end: 20120508
  2. NORVASC [Suspect]
     Indication: HYPERTENSION
     Dosage: 10 MG ONCE A DAY PO
     Route: 048
     Dates: start: 20120430, end: 20120531

REACTIONS (7)
  - INSOMNIA [None]
  - IRRITABILITY [None]
  - THINKING ABNORMAL [None]
  - DYSPNOEA [None]
  - APHASIA [None]
  - DRY MOUTH [None]
  - HYPERHIDROSIS [None]
